FAERS Safety Report 12906430 (Version 2)
Quarter: 2016Q4

REPORT INFORMATION
  Report Type: Spontaneous
  Country: US (occurrence: US)
  Receive Date: 20161103
  Receipt Date: 20161227
  Transmission Date: 20170207
  Serious: No
  Sender: FDA-Public Use
  Company Number: US-PFIZER INC-2016510344

PATIENT
  Age: 41 Year
  Sex: Female
  Weight: 42.18 kg

DRUGS (1)
  1. MEDROXYPROGESTERONE ACETATE. [Suspect]
     Active Substance: MEDROXYPROGESTERONE ACETATE
     Indication: OVARIAN CYST
     Dosage: UNK
     Route: 030
     Dates: start: 2011

REACTIONS (7)
  - Injection site haemorrhage [Unknown]
  - Pruritus [Unknown]
  - Injection site bruising [Unknown]
  - Amenorrhoea [Unknown]
  - Product use issue [Unknown]
  - Product quality issue [Unknown]
  - Intentional product misuse [Unknown]
